FAERS Safety Report 6175488-9 (Version None)
Quarter: 2009Q2

REPORT INFORMATION
  Report Type: 
  Country: None (occurrence: None)
  Receive Date: 20090430
  Receipt Date: 20090420
  Transmission Date: 20091009
  Serious: Yes (Life-Threatening, Hospitalization)
  Sender: FDA-Public Use
  Company Number: TPH-00170

PATIENT

DRUGS (1)
  1. TRIQUILAR [Suspect]
     Indication: CONTRACEPTION
     Dosage: 1 DF ORAL
     Route: 048
     Dates: start: 20080401, end: 20080501

REACTIONS (1)
  - INTRACRANIAL VENOUS SINUS THROMBOSIS [None]
